FAERS Safety Report 18637357 (Version 1)
Quarter: 2020Q4

REPORT INFORMATION
  Report Type: Spontaneous
  Country: IE (occurrence: IE)
  Receive Date: 20201218
  Receipt Date: 20201218
  Transmission Date: 20210114
  Serious: Yes (Other)
  Sender: FDA-Public Use
  Company Number: IE-MYLANLABS-2020M1102126

PATIENT
  Age: 65 Year
  Sex: Male

DRUGS (12)
  1. METFORMIN [Concomitant]
     Active Substance: METFORMIN HYDROCHLORIDE
     Dosage: 500 MILLIGRAM, BID
  2. ESOMEPRAZOLE. [Concomitant]
     Active Substance: ESOMEPRAZOLE MAGNESIUM
     Dosage: 20 MILLIGRAM, QD
  3. JARDIANCE [Concomitant]
     Active Substance: EMPAGLIFLOZIN
     Dosage: 25 MILLIGRAM, QD
  4. CORTIMENT                          /00028601/ [Concomitant]
     Active Substance: HYDROCORTISONE
     Dosage: 9 MILLIGRAM, QD
     Dates: start: 20201104
  5. EFUDIX 5% W/W CREAM [Suspect]
     Active Substance: FLUOROURACIL
     Indication: ACTINIC KERATOSIS
     Dosage: EXTERNAL APPLICATION TO FOREHEAD AND BOTH SIDES OF THE FACE
     Route: 061
     Dates: start: 20201024, end: 20201106
  6. CRESTOR [Concomitant]
     Active Substance: ROSUVASTATIN CALCIUM
     Dosage: 20 MILLIGRAM, QD
  7. VALSARTAN MYLAN [Concomitant]
     Active Substance: VALSARTAN
     Dosage: 80 MILLIGRAM, QD
  8. CALCICHEW-D3 FORTE [Concomitant]
     Active Substance: CALCIUM\CHOLECALCIFEROL
     Dosage: 1 DOSAGE FORM, QD
  9. HUMIRA [Concomitant]
     Active Substance: ADALIMUMAB
     Dosage: 40MG ONCE EVERY TWO WEEKS, PREVIOUSLY ONCE A WEEK
  10. HUMIRA [Concomitant]
     Active Substance: ADALIMUMAB
     Dosage: 40MG ONCE EVERY TWO WEEKS, PREVIOUSLY ONCE A WEEK
  11. PENTASA [Concomitant]
     Active Substance: MESALAMINE
     Dosage: 3 GRAM, QD
  12. FOLIC ACID. [Concomitant]
     Active Substance: FOLIC ACID
     Dosage: 5 MILLIGRAM, QD

REACTIONS (10)
  - Skin tightness [Recovering/Resolving]
  - Skin exfoliation [Recovering/Resolving]
  - Skin burning sensation [Recovering/Resolving]
  - Erythema [Recovering/Resolving]
  - Headache [Unknown]
  - Pruritus [Recovering/Resolving]
  - Rash macular [Recovering/Resolving]
  - Pain of skin [Recovering/Resolving]
  - Condition aggravated [Not Recovered/Not Resolved]
  - Mucosal disorder [Not Recovered/Not Resolved]
